FAERS Safety Report 14647234 (Version 1)
Quarter: 2018Q1

REPORT INFORMATION
  Report Type: Spontaneous
  Country: US (occurrence: US)
  Receive Date: 20180316
  Receipt Date: 20180316
  Transmission Date: 20180509
  Serious: No
  Sender: FDA-Public Use
  Company Number: US-PFIZER INC-2018107833

PATIENT
  Sex: Female

DRUGS (1)
  1. PRISTIQ EXTENDED-RELEASE [Suspect]
     Active Substance: DESVENLAFAXINE SUCCINATE
     Indication: PANIC ATTACK
     Dosage: 50 MG, DAILY
     Dates: start: 2012, end: 201801

REACTIONS (7)
  - Agitation [Unknown]
  - Intentional product misuse [Unknown]
  - Disturbance in attention [Unknown]
  - Insomnia [Unknown]
  - Product use in unapproved indication [Unknown]
  - Irritability [Unknown]
  - Amnesia [Unknown]
